FAERS Safety Report 6025270-8 (Version None)
Quarter: 2008Q4

REPORT INFORMATION
  Report Type: 
  Country: None (occurrence: None)
  Receive Date: 20081231
  Receipt Date: 20081223
  Transmission Date: 20090506
  Serious: Yes (Other)
  Sender: FDA-Public Use
  Company Number: PHHY2008AR29605

PATIENT
  Sex: Female

DRUGS (2)
  1. ACLASTA [Suspect]
     Indication: OSTEOPOROSIS
     Dosage: UNK
     Dates: start: 20080731
  2. ACLASTA [Suspect]
     Indication: OSTEITIS DEFORMANS

REACTIONS (5)
  - BONE FISSURE [None]
  - FALL [None]
  - GAIT DISTURBANCE [None]
  - PELVIC PAIN [None]
  - WOUND [None]
